FAERS Safety Report 13058791 (Version 2)
Quarter: 2017Q1

REPORT INFORMATION
  Report Type: Spontaneous
  Country: US (occurrence: US)
  Receive Date: 20161223
  Receipt Date: 20170327
  Transmission Date: 20170428
  Serious: Yes (Other)
  Sender: FDA-Public Use
  Company Number: US-BRISTOL-MYERS SQUIBB COMPANY-BMS-2016-108050

PATIENT
  Sex: Female

DRUGS (1)
  1. ELIQUIS [Suspect]
     Active Substance: APIXABAN
     Indication: PRODUCT USED FOR UNKNOWN INDICATION
     Dosage: 5 MG, BID
     Route: 048

REACTIONS (10)
  - Pneumaturia [Unknown]
  - Blood glucose fluctuation [Unknown]
  - Blood pressure fluctuation [Unknown]
  - Rheumatoid arthritis [Unknown]
  - Tremor [Unknown]
  - Pruritus [Unknown]
  - Alopecia [Unknown]
  - Asthenia [Unknown]
  - Osteoarthritis [Unknown]
  - Ocular hyperaemia [Unknown]
